FAERS Safety Report 6506219-8 (Version None)
Quarter: 2009Q4

REPORT INFORMATION
  Report Type: 
  Country: None (occurrence: None)
  Receive Date: 20091218
  Receipt Date: 20091208
  Transmission Date: 20100525
  Serious: Yes (Other)
  Sender: FDA-Public Use
  Company Number: PHHY2009FR54524

PATIENT
  Sex: Female
  Weight: 58 kg

DRUGS (1)
  1. GLEEVEC [Suspect]
     Indication: CHRONIC MYELOID LEUKAEMIA
     Dosage: 400 MG, QD
     Route: 048
     Dates: start: 20090701, end: 20090923

REACTIONS (5)
  - FACE OEDEMA [None]
  - HYPOPARATHYROIDISM [None]
  - HYPOTHYROIDISM [None]
  - LOCALISED OEDEMA [None]
  - SLEEP APNOEA SYNDROME [None]
